FAERS Safety Report 25778519 (Version 2)
Quarter: 2025Q3

REPORT INFORMATION
  Report Type: Spontaneous
  Country: US (occurrence: US)
  Receive Date: 20250909
  Receipt Date: 20250917
  Transmission Date: 20251021
  Serious: Yes (Other)
  Sender: KALVISTA PHARMACEUTICALS
  Company Number: US-KP-00066

PATIENT
  Age: 36 Year
  Sex: Female

DRUGS (2)
  1. EKTERLY [Suspect]
     Active Substance: SEBETRALSTAT
     Indication: Hereditary angioedema
     Route: 048
     Dates: start: 20250826, end: 20250827
  2. EKTERLY [Suspect]
     Active Substance: SEBETRALSTAT
     Indication: Hereditary angioedema
     Route: 048
     Dates: start: 20250723

REACTIONS (2)
  - Hypersensitivity [Recovered/Resolved]
  - Hereditary angioedema [Not Recovered/Not Resolved]

NARRATIVE: CASE EVENT DATE: 20250826
